FAERS Safety Report 10201316 (Version 3)
Quarter: 2015Q3

REPORT INFORMATION
  Report Type: Spontaneous
  Country: DK (occurrence: DK)
  Receive Date: 20140528
  Receipt Date: 20150916
  Transmission Date: 20151125
  Serious: Yes (Other)
  Sender: FDA-Public Use
  Company Number: DK-MERCK-1405DNK011414

PATIENT
  Sex: Female

DRUGS (5)
  1. ALLOPURINOL. [Concomitant]
     Active Substance: ALLOPURINOL
     Indication: HYPERSENSITIVITY
  2. PEGINTRON [Suspect]
     Active Substance: PEGINTERFERON ALFA-2B
     Dosage: 50 MICROGRAM, QW, STRENGTH: 50MICROGRAM/0.5 ML
     Route: 058
     Dates: start: 2013, end: 20130726
  3. PEGINTRON [Suspect]
     Active Substance: PEGINTERFERON ALFA-2B
     Indication: POLYCYTHAEMIA VERA
     Dosage: 50 MICROGRAM, QW, STRENGTH: 50 MICROGRAM/0.5 ML
     Route: 058
     Dates: start: 20130301, end: 2013
  4. ELTROXIN [Concomitant]
     Active Substance: LEVOTHYROXINE
     Indication: MYXOEDEMA
     Dosage: 150 MICROGRAM, QD
     Route: 048
  5. HJERTEMAGNYL [Concomitant]
     Active Substance: ASPIRIN\MAGNESIUM OXIDE
     Indication: POLYCYTHAEMIA VERA
     Dosage: 75 MG, DAILY
     Route: 048

REACTIONS (6)
  - Pruritus [Unknown]
  - Eye irritation [Unknown]
  - Sudden hearing loss [Unknown]
  - Influenza like illness [Unknown]
  - Tinnitus [Unknown]
  - Abdominal discomfort [Unknown]

NARRATIVE: CASE EVENT DATE: 2013
